FAERS Safety Report 4985986-9 (Version None)
Quarter: 2006Q2

REPORT INFORMATION
  Report Type: 
  Country: None (occurrence: None)
  Receive Date: 20060421
  Receipt Date: 20060330
  Transmission Date: 20061013
  Serious: Yes (Other)
  Sender: FDA-Public Use
  Company Number: 224229

PATIENT
  Age: 49 Year
  Sex: Female
  Weight: 68 kg

DRUGS (2)
  1. HERCEPTIN [Suspect]
     Indication: BREAST CANCER METASTATIC
     Dosage: 400 MG, Q3W, INTRAVENOUS
     Route: 042
     Dates: start: 20051115, end: 20060215
  2. TAMOXIFEN CITRATE [Concomitant]

REACTIONS (3)
  - EJECTION FRACTION DECREASED [None]
  - LARYNGEAL OEDEMA [None]
  - SKIN LESION [None]
